FAERS Safety Report 4441390-3 (Version None)
Quarter: 2004Q3

REPORT INFORMATION
  Report Type: 
  Country: None (occurrence: None)
  Receive Date: 20040728
  Receipt Date: 20040428
  Transmission Date: 20050211
  Serious: No
  Sender: FDA-Public Use
  Company Number: USA040466226

PATIENT
  Age: 26 Year
  Sex: Male

DRUGS (4)
  1. STRATTERA [Suspect]
     Indication: ATTENTION DEFICIT/HYPERACTIVITY DISORDER
     Dosage: 18 MG DAY
  2. SEROQUEL [Concomitant]
  3. REMERON [Concomitant]
  4. TRAZADONE(TRAZODONE) [Concomitant]

REACTIONS (2)
  - EYE HAEMORRHAGE [None]
  - MIGRAINE [None]
